FAERS Safety Report 24015829 (Version 1)
Quarter: 2024Q2

REPORT INFORMATION
  Report Type: Spontaneous
  Country: US (occurrence: US)
  Receive Date: 20240626
  Receipt Date: 20240626
  Transmission Date: 20240716
  Serious: Yes (Hospitalization, Other)
  Sender: FDA-Public Use
  Company Number: US-BAXTER-2024BAX020263

PATIENT
  Age: 54 Year
  Sex: Male

DRUGS (4)
  1. IFOSFAMIDE [Suspect]
     Active Substance: IFOSFAMIDE
     Indication: Synovial sarcoma
     Dosage: FOURTH CYCLE OF AIM, CUMULATIVE IFOSFAMIDE DOSE OF 10 G/M2
     Route: 065
  2. DOXORUBICIN [Suspect]
     Active Substance: DOXORUBICIN
     Indication: Synovial sarcoma
     Route: 065
  3. ADRIAMYCIN [Suspect]
     Active Substance: DOXORUBICIN HYDROCHLORIDE
     Indication: Synovial sarcoma
     Dosage: FOURTH CYCLE OF AIM
     Route: 065
  4. MESNA [Suspect]
     Active Substance: MESNA
     Indication: Synovial sarcoma
     Dosage: FOURTH CYCLE OF AIM
     Route: 065

REACTIONS (18)
  - Fanconi syndrome [Unknown]
  - Hypokalaemia [Recovered/Resolved]
  - Hypophosphataemia [Recovered/Resolved]
  - Renal glycosuria [Unknown]
  - Amino acid level increased [Unknown]
  - Blood uric acid decreased [Unknown]
  - Urine phosphorus increased [Recovered/Resolved]
  - Acute kidney injury [Recovering/Resolving]
  - Renal tubular necrosis [Unknown]
  - Pyrexia [Unknown]
  - Acidosis hyperchloraemic [Unknown]
  - Blood creatinine increased [Unknown]
  - Febrile neutropenia [Unknown]
  - Renal tubular acidosis [Unknown]
  - Nephrogenic diabetes insipidus [Unknown]
  - Hypernatraemia [Recovered/Resolved]
  - Polyuria [Recovering/Resolving]
  - Urine osmolarity decreased [Recovering/Resolving]
